FAERS Safety Report 23506668 (Version 1)
Quarter: 2024Q1

REPORT INFORMATION
  Report Type: Spontaneous
  Country: US (occurrence: US)
  Receive Date: 20240209
  Receipt Date: 20240209
  Transmission Date: 20240410
  Serious: No
  Sender: FDA-Public Use
  Company Number: US-IBSA PHARMA INC.-2023IBS000224

PATIENT

DRUGS (4)
  1. TIROSINT-SOL [Suspect]
     Active Substance: LEVOTHYROXINE SODIUM
     Indication: Congenital hypothyroidism
     Dosage: UNK
     Route: 048
     Dates: start: 202104
  2. TIROSINT-SOL [Suspect]
     Active Substance: LEVOTHYROXINE SODIUM
     Dosage: 1/2 VIAL OF THE 75 MCG
     Route: 048
     Dates: start: 20220228
  3. TIROSINT-SOL [Suspect]
     Active Substance: LEVOTHYROXINE SODIUM
     Dosage: 1/2 VIAL OF THE 88 MCG
     Route: 048
     Dates: start: 202206
  4. TIROSINT-SOL [Suspect]
     Active Substance: LEVOTHYROXINE SODIUM
     Dosage: 50 MCG VIAL
     Route: 048
     Dates: start: 20220929, end: 20230111

REACTIONS (3)
  - Growth disorder [Unknown]
  - Underdose [Unknown]
  - Blood thyroid stimulating hormone increased [Unknown]

NARRATIVE: CASE EVENT DATE: 20220101
